FAERS Safety Report 16363804 (Version 1)
Quarter: 2019Q2

REPORT INFORMATION
  Report Type: Spontaneous
  Country: FR (occurrence: FR)
  Receive Date: 20190528
  Receipt Date: 20190528
  Transmission Date: 20190711
  Serious: Yes (Hospitalization)
  Sender: FDA-Public Use
  Company Number: FR-UCBSA-2019021517

PATIENT
  Age: 90 Year
  Sex: Female

DRUGS (1)
  1. NEUPRO [Suspect]
     Active Substance: ROTIGOTINE
     Indication: RESTLESS LEGS SYNDROME
     Dosage: 2 MILLIGRAM, ONCE DAILY (QD)
     Route: 003
     Dates: start: 2017, end: 20180801

REACTIONS (7)
  - Electroencephalogram abnormal [Recovered/Resolved]
  - Coma [Recovered/Resolved]
  - Encephalopathy [Recovered/Resolved]
  - Hemiparesis [Recovered/Resolved]
  - Disturbance in attention [Recovered/Resolved]
  - Malaise [Recovered/Resolved]
  - Speech disorder [Recovered/Resolved]

NARRATIVE: CASE EVENT DATE: 20180730
